FAERS Safety Report 8292447-0 (Version None)
Quarter: 2012Q2

REPORT INFORMATION
  Report Type: 
  Country: None (occurrence: None)
  Receive Date: 20120417
  Receipt Date: 20120409
  Transmission Date: 20120825
  Serious: Yes (Hospitalization, Disabling)
  Sender: FDA-Public Use
  Company Number: BR-ROCHE-1059795

PATIENT
  Sex: Female

DRUGS (8)
  1. BAMIFIX [Concomitant]
  2. SINGULAIR [Concomitant]
  3. SIMVACOR [Concomitant]
  4. CORTISONE ACETATE [Concomitant]
  5. INDAPEN [Concomitant]
  6. XOLAIR [Suspect]
     Indication: PRODUCT USED FOR UNKNOWN INDICATION
     Route: 058
  7. RABEPRAZOLE SODIUM [Concomitant]
  8. FORMOTEROL FUMARATE [Suspect]
     Indication: ASTHMA
     Dosage: 12/400 MCG 60/60 (FUMARATE/BUDESONIDE)

REACTIONS (4)
  - FIBROMYALGIA [None]
  - ASTHMA [None]
  - ANKLE FRACTURE [None]
  - FALL [None]
